FAERS Safety Report 25192602 (Version 2)
Quarter: 2025Q2

REPORT INFORMATION
  Report Type: Spontaneous
  Country: HR (occurrence: HR)
  Receive Date: 20250414
  Receipt Date: 20250418
  Transmission Date: 20250717
  Serious: Yes (Life-Threatening)
  Sender: MYLAN
  Company Number: None

PATIENT
  Age: 55 Year
  Sex: Female
  Weight: 83 kg

DRUGS (3)
  1. NORVASC [Suspect]
     Active Substance: AMLODIPINE BESYLATE
     Indication: Hypertension
     Dosage: 5 MILLIGRAM, QD
     Dates: start: 20250318, end: 20250321
  2. AMLODIPINE BESYLATE\PERINDOPRIL ERBUMINE [Suspect]
     Active Substance: AMLODIPINE BESYLATE\PERINDOPRIL ERBUMINE
     Indication: Hypertension
     Dosage: 1 DOSAGE FORM, QD (1 DF = 2.85 MG PERINDOPRIL)
     Dates: start: 20231213, end: 20250315
  3. PERINDOPRIL ERBUMINE [Suspect]
     Active Substance: PERINDOPRIL ERBUMINE
     Indication: Hypertension
     Dosage: 2 MILLIGRAM, QD
     Dates: start: 20250317, end: 20250318

REACTIONS (6)
  - Vertigo [Unknown]
  - Blood pressure decreased [Recovering/Resolving]
  - Chest discomfort [Recovered/Resolved]
  - Diarrhoea [Recovering/Resolving]
  - Heart rate increased [Recovered/Resolved]
  - Cough [Recovered/Resolved]

NARRATIVE: CASE EVENT DATE: 20240101
